FAERS Safety Report 7688920-6 (Version None)
Quarter: 2011Q3

REPORT INFORMATION
  Report Type: 
  Country: None (occurrence: None)
  Receive Date: 20110817
  Receipt Date: 20110815
  Transmission Date: 20111222
  Serious: Yes (Hospitalization, Other)
  Sender: FDA-Public Use
  Company Number: CA-ABBOTT-11P-028-0841223-00

PATIENT
  Sex: Male

DRUGS (2)
  1. CHEMOTHERAPY [Concomitant]
     Indication: PRODUCT USED FOR UNKNOWN INDICATION
  2. LUPRON DEPOT [Suspect]
     Indication: PROSTATE CANCER
     Dosage: 4 MONTHS DEPOT
     Route: 030
     Dates: start: 20060515

REACTIONS (4)
  - ABDOMINAL PAIN [None]
  - DIVERTICULAR PERFORATION [None]
  - IMPAIRED HEALING [None]
  - ASTHENIA [None]
